FAERS Safety Report 7955350-9 (Version None)
Quarter: 2011Q4

REPORT INFORMATION
  Report Type: 
  Country: None (occurrence: None)
  Receive Date: 20111202
  Receipt Date: 20111121
  Transmission Date: 20120403
  Serious: No
  Sender: FDA-Public Use
  Company Number: US-ELI_LILLY_AND_COMPANY-US201110006095

PATIENT
  Age: 64 Year
  Sex: Female

DRUGS (11)
  1. METAMUCIL-2 [Concomitant]
  2. CALCIUM [Concomitant]
     Dosage: UNK, QD
  3. ATENOLOL [Concomitant]
     Dosage: 25 MG, QD
  4. FISH OIL [Concomitant]
     Dosage: UNK, BID
  5. FORTEO [Suspect]
     Indication: OSTEOPOROSIS
     Dosage: 20 UG, QD
     Route: 065
     Dates: start: 20110627
  6. GLUCOSAMINE [Concomitant]
     Dosage: UNK, BID
  7. ASPIRIN [Concomitant]
     Dosage: UNK, QD
  8. MULTI-VITAMIN [Concomitant]
     Dosage: UNK
  9. VITAMIN D [Concomitant]
     Dosage: 50000 U, WEEKLY (1/W)
  10. CRESTOR [Concomitant]
     Dosage: 20 MG, QD
  11. MAXZIDE [Concomitant]
     Dosage: 25 MG, QD

REACTIONS (4)
  - OEDEMA PERIPHERAL [None]
  - JOINT SWELLING [None]
  - RHINORRHOEA [None]
  - COUGH [None]
